FAERS Safety Report 5146723-0 (Version None)
Quarter: 2006Q4

REPORT INFORMATION
  Report Type: 
  Country: None (occurrence: None)
  Receive Date: 20061102
  Receipt Date: 20061020
  Transmission Date: 20070319
  Serious: Yes (Other)
  Sender: FDA-Public Use
  Company Number: T200601243

PATIENT
  Sex: Male

DRUGS (1)
  1. METHADOSE [Suspect]

REACTIONS (2)
  - BLOOD PRESSURE DIASTOLIC INCREASED [None]
  - BLOOD PRESSURE FLUCTUATION [None]
